FAERS Safety Report 8416491-5 (Version None)
Quarter: 2012Q2

REPORT INFORMATION
  Report Type: 
  Country: None (occurrence: None)
  Receive Date: 20120606
  Receipt Date: 20120530
  Transmission Date: 20120825
  Serious: Yes (Hospitalization, Other)
  Sender: FDA-Public Use
  Company Number: FR-ABBOTT-12P-056-0940707-00

PATIENT
  Sex: Male

DRUGS (6)
  1. ACETAMINOPHEN [Suspect]
     Indication: PYREXIA
     Route: 048
     Dates: start: 20120418, end: 20120422
  2. CEFTRIAXONE [Concomitant]
     Indication: PRODUCT USED FOR UNKNOWN INDICATION
     Route: 030
     Dates: start: 20120422, end: 20120423
  3. ACETYLCYSTEINE [Concomitant]
     Indication: PRODUCT USED FOR UNKNOWN INDICATION
     Dates: start: 20120422
  4. HUMIRA [Suspect]
     Indication: COLITIS ULCERATIVE
     Route: 058
     Dates: start: 20100601
  5. IBUPROFEN [Suspect]
     Indication: PYREXIA
     Dosage: 1-2 DOSAGE FORMS, 3-4 TIMES A DAY
     Route: 048
     Dates: start: 20120418, end: 20120422
  6. OFLOXACIN [Concomitant]
     Indication: PRODUCT USED FOR UNKNOWN INDICATION
     Dates: start: 20120422

REACTIONS (3)
  - AGRANULOCYTOSIS [None]
  - MONONUCLEOSIS SYNDROME [None]
  - LUNG DISORDER [None]
